FAERS Safety Report 21815339 (Version 1)
Quarter: 2023Q1

REPORT INFORMATION
  Report Type: Spontaneous
  Country: US (occurrence: US)
  Receive Date: 20230104
  Receipt Date: 20230104
  Transmission Date: 20230418
  Serious: No
  Sender: FDA-Public Use
  Company Number: US-ABBVIE-4220759

PATIENT
  Sex: Male

DRUGS (1)
  1. SYNTHROID [Suspect]
     Active Substance: LEVOTHYROXINE SODIUM
     Indication: Hypothyroidism
     Dosage: FORM STRENGHT-200 MICROGRAM
     Route: 048

REACTIONS (4)
  - Weight increased [Unknown]
  - Product physical issue [Unknown]
  - Mood swings [Unknown]
  - Feeling abnormal [Unknown]
